FAERS Safety Report 12238912 (Version 1)
Quarter: 2016Q2

REPORT INFORMATION
  Report Type: Spontaneous
  Country: US (occurrence: US)
  Receive Date: 20160405
  Receipt Date: 20160405
  Transmission Date: 20160815
  Serious: No
  Sender: FDA-Public Use
  Company Number: US-PFIZER INC-2016148670

PATIENT
  Age: 36 Year
  Sex: Female
  Weight: 72.57 kg

DRUGS (5)
  1. TRAMADOL. [Concomitant]
     Active Substance: TRAMADOL
     Indication: UTERINE PAIN
     Dosage: 50 MG, AS NEEDED
  2. NAPROXEN. [Concomitant]
     Active Substance: NAPROXEN
     Indication: UTERINE PAIN
     Dosage: 500 MG, AS NEEDED
  3. RELPAX [Suspect]
     Active Substance: ELETRIPTAN HYDROBROMIDE
     Indication: MIGRAINE
     Dosage: 40 MG, 1X/DAY
     Route: 048
     Dates: start: 20160225
  4. TRAMADOL. [Concomitant]
     Active Substance: TRAMADOL
     Indication: UTERINE INFLAMMATION
  5. NAPROXEN. [Concomitant]
     Active Substance: NAPROXEN
     Indication: UTERINE INFLAMMATION

REACTIONS (2)
  - Drug ineffective [Unknown]
  - Blood cholesterol increased [Unknown]
